FAERS Safety Report 10803276 (Version 2)
Quarter: 2015Q1

REPORT INFORMATION
  Report Type: Spontaneous
  Country: FR (occurrence: FR)
  Receive Date: 20150217
  Receipt Date: 20150220
  Transmission Date: 20150721
  Serious: Yes (Death, Hospitalization)
  Sender: FDA-Public Use
  Company Number: FR-ASTRAZENECA-2015SE15011

PATIENT
  Age: 66 Year
  Sex: Female
  Weight: 67 kg

DRUGS (8)
  1. BISOCE [Concomitant]
     Active Substance: BISOPROLOL
     Dates: start: 20141228
  2. KARDEGIC [Concomitant]
     Active Substance: ASPIRIN LYSINE
     Indication: ACUTE CORONARY SYNDROME
     Route: 048
     Dates: start: 20141228, end: 20150208
  3. COVERSYL [Concomitant]
     Active Substance: PERINDOPRIL
     Dates: start: 20141228
  4. BRILIQUE [Suspect]
     Active Substance: TICAGRELOR
     Indication: MYOCARDIAL INFARCTION
     Route: 048
     Dates: start: 20141230, end: 20150208
  5. TAHOR [Concomitant]
     Active Substance: ATORVASTATIN CALCIUM
     Dates: start: 20141228
  6. NICOPATCH [Concomitant]
     Active Substance: NICOTINE
     Dates: start: 20141228
  7. ACTILYSE [Suspect]
     Active Substance: ALTEPLASE
     Indication: THROMBOLYSIS
     Dosage: 58
     Route: 065
     Dates: start: 20150208, end: 20150208
  8. INEXIUM [Concomitant]
     Active Substance: ESOMEPRAZOLE
     Dates: start: 20141228

REACTIONS (2)
  - Ischaemic stroke [Recovered/Resolved]
  - Cerebral haemorrhage [Fatal]

NARRATIVE: CASE EVENT DATE: 20150208
